FAERS Safety Report 19782970 (Version 2)
Quarter: 2021Q3

REPORT INFORMATION
  Report Type: Spontaneous
  Country: US (occurrence: US)
  Receive Date: 20210902
  Receipt Date: 20210903
  Transmission Date: 20211014
  Serious: Yes (Other)
  Sender: FDA-Public Use
  Company Number: US-TEVA-2021-US-1947382

PATIENT
  Sex: Female

DRUGS (1)
  1. TORASEMIDE [Suspect]
     Active Substance: TORSEMIDE
     Route: 065

REACTIONS (4)
  - Therapeutic product effect decreased [Unknown]
  - Oropharyngeal pain [Unknown]
  - Product solubility abnormal [Unknown]
  - Foreign body in throat [Unknown]
